FAERS Safety Report 10446011 (Version 1)
Quarter: 2014Q3

REPORT INFORMATION
  Report Type: Spontaneous
  Country: US (occurrence: US)
  Receive Date: 20140910
  Receipt Date: 20140910
  Transmission Date: 20150326
  Serious: No
  Sender: FDA-Public Use
  Company Number: US-009507513-1409USA002569

PATIENT
  Sex: Female

DRUGS (1)
  1. IMPLANON [Suspect]
     Active Substance: ETONOGESTREL
     Dosage: 1/3 YEARS
     Route: 059
     Dates: start: 2011

REACTIONS (3)
  - Medical device complication [Not Recovered/Not Resolved]
  - Device dislocation [Unknown]
  - Adverse event [Unknown]
